FAERS Safety Report 9353992 (Version 2)
Quarter: 2015Q3

REPORT INFORMATION
  Report Type: Spontaneous
  Country: JP (occurrence: JP)
  Receive Date: 20130618
  Receipt Date: 20150924
  Transmission Date: 20151125
  Serious: Yes (Hospitalization)
  Sender: FDA-Public Use
  Company Number: PHHY2013JP060870

PATIENT
  Age: 15 Year
  Sex: Male

DRUGS (4)
  1. DIGOXIN. [Suspect]
     Active Substance: DIGOXIN
     Indication: ATRIAL TACHYCARDIA
     Dosage: 0.005 MG/KG, BID
     Route: 065
  2. DISOPYRAMIDE [Suspect]
     Active Substance: DISOPYRAMIDE
     Indication: ATRIAL TACHYCARDIA
     Dosage: 1 MG/KG, UNK
     Route: 042
  3. LANDIOLOL [Suspect]
     Active Substance: LANDIOLOL
     Indication: ATRIAL TACHYCARDIA
     Dosage: 3 UG/KG PER MIN
     Route: 041
  4. PROCAINAMIDE [Suspect]
     Active Substance: PROCAINAMIDE HYDROCHLORIDE
     Indication: ATRIAL TACHYCARDIA
     Dosage: 5 MG/KG, UNK
     Route: 042

REACTIONS (9)
  - Torsade de pointes [Recovering/Resolving]
  - Atrial tachycardia [Recovering/Resolving]
  - Loss of consciousness [Recovering/Resolving]
  - Ventricular extrasystoles [Recovering/Resolving]
  - Tachycardia [Unknown]
  - Electrocardiogram QT prolonged [Recovering/Resolving]
  - Syncope [Recovering/Resolving]
  - Bradycardia [Unknown]
  - Drug ineffective [Unknown]
